FAERS Safety Report 15005238 (Version 1)
Quarter: 2018Q2

REPORT INFORMATION
  Report Type: Spontaneous
  Country: US (occurrence: US)
  Receive Date: 20180613
  Receipt Date: 20180613
  Transmission Date: 20180711
  Serious: Yes (Other)
  Sender: FDA-Public Use
  Company Number: US-PFIZER INC-2018238765

PATIENT
  Age: 50 Year
  Sex: Female

DRUGS (4)
  1. GABAPENTIN. [Suspect]
     Active Substance: GABAPENTIN
     Dosage: 800 MG, 3X/DAY
  2. LYRICA [Suspect]
     Active Substance: PREGABALIN
     Indication: NEUROPATHY PERIPHERAL
     Dosage: 300 MG, UNK
     Dates: start: 2002
  3. LYRICA [Suspect]
     Active Substance: PREGABALIN
     Dosage: 100 MG, 2X/DAY
  4. SUBOXONE [Concomitant]
     Active Substance: BUPRENORPHINE HYDROCHLORIDE\NALOXONE HYDROCHLORIDE
     Indication: PAIN

REACTIONS (21)
  - Pain [Unknown]
  - Head injury [Unknown]
  - Hypoaesthesia [Unknown]
  - Insomnia [Unknown]
  - Scar [Unknown]
  - Clavicle fracture [Unknown]
  - Musculoskeletal disorder [Unknown]
  - Peripheral coldness [Unknown]
  - Alcoholism [Recovered/Resolved]
  - Drug dependence [Unknown]
  - Fall [Unknown]
  - Irritability [Unknown]
  - Haemarthrosis [Unknown]
  - Cerebral haemorrhage [Unknown]
  - Hypertension [Unknown]
  - Panic attack [Unknown]
  - Ligament rupture [Unknown]
  - Dyskinesia [Unknown]
  - Scapula fracture [Unknown]
  - Vision blurred [Unknown]
  - Thermal burn [Unknown]

NARRATIVE: CASE EVENT DATE: 2013
